FAERS Safety Report 21600345 (Version 1)
Quarter: 2022Q4

REPORT INFORMATION
  Report Type: Report from Study
  Country: CA (occurrence: CA)
  Receive Date: 20221116
  Receipt Date: 20221116
  Transmission Date: 20230113
  Serious: Yes (Other)
  Sender: FDA-Public Use
  Company Number: CA-002147023-NVSC2022CA149443

PATIENT
  Age: 37 Year
  Sex: Female

DRUGS (1)
  1. KESIMPTA [Suspect]
     Active Substance: OFATUMUMAB
     Indication: Relapsing-remitting multiple sclerosis
     Dosage: UNK
     Route: 058
     Dates: start: 20220627

REACTIONS (4)
  - Expanded disability status scale score increased [Unknown]
  - Laryngitis [Unknown]
  - Injection site coldness [Unknown]
  - Product preparation error [Unknown]

NARRATIVE: CASE EVENT DATE: 20220627
